FAERS Safety Report 5708685-4 (Version None)
Quarter: 2008Q2

REPORT INFORMATION
  Report Type: 
  Country: None (occurrence: None)
  Receive Date: 20080417
  Receipt Date: 20080321
  Transmission Date: 20081010
  Serious: No
  Sender: FDA-Public Use
  Company Number: US-BOEHRINGER INGELHEIM GMBH, GERMANY-2008-BP-04570BP

PATIENT
  Age: 37 Year
  Sex: Male

DRUGS (2)
  1. FLOMAX [Suspect]
  2. STRESS MEDICATIONS [Concomitant]
     Indication: STRESS

REACTIONS (3)
  - DIZZINESS [None]
  - HYPERTENSION [None]
  - SPERM COUNT DECREASED [None]
